FAERS Safety Report 10608481 (Version 2)
Quarter: 2015Q1

REPORT INFORMATION
  Report Type: Spontaneous
  Country: US (occurrence: US)
  Receive Date: 20141125
  Receipt Date: 20150105
  Transmission Date: 20150720
  Serious: No
  Sender: FDA-Public Use
  Company Number: US-PFIZER INC-2014322439

PATIENT
  Sex: Female

DRUGS (2)
  1. CHANTIX [Suspect]
     Active Substance: VARENICLINE TARTRATE
     Dosage: 1 MG, UNK(CANNOT TAKE ANY MORE)
  2. DURAGESIC [Interacting]
     Active Substance: FENTANYL
     Dosage: 100 ?G, UNK(1 PATCH EVERY 3 DAY)

REACTIONS (2)
  - Drug withdrawal syndrome [Unknown]
  - Drug interaction [Unknown]
